FAERS Safety Report 6423325-7 (Version None)
Quarter: 2009Q4

REPORT INFORMATION
  Report Type: 
  Country: None (occurrence: None)
  Receive Date: 20091028
  Receipt Date: 20091014
  Transmission Date: 20100525
  Serious: Yes (Other)
  Sender: FDA-Public Use
  Company Number: 2009AP004000

PATIENT
  Age: 52 Year
  Sex: Female

DRUGS (6)
  1. CITALOPRAM HYDROBROMIDE [Suspect]
     Indication: DEPRESSION
     Dosage: TAB;PO
     Route: 048
     Dates: start: 20071101, end: 20080401
  2. AMITRIPTYLINE HYDROCHLORIDE [Suspect]
  3. METHADONE HCL [Suspect]
  4. BUPROPION HYDROCHLORIDE [Concomitant]
  5. VENLAFAXINE HCL [Concomitant]
  6. PREGABALIN [Concomitant]

REACTIONS (21)
  - AGGRESSION [None]
  - AMNESIA [None]
  - CRYING [None]
  - DISORIENTATION [None]
  - DIZZINESS [None]
  - DYSPHEMIA [None]
  - EMOTIONAL DISTRESS [None]
  - FAMILY STRESS [None]
  - FATIGUE [None]
  - FEELING ABNORMAL [None]
  - FRUSTRATION [None]
  - HALLUCINATION [None]
  - HYPERSOMNIA [None]
  - JOINT STIFFNESS [None]
  - MEMORY IMPAIRMENT [None]
  - MENTAL IMPAIRMENT [None]
  - PARALYSIS [None]
  - PARTNER STRESS [None]
  - THINKING ABNORMAL [None]
  - TREMOR [None]
  - WEIGHT DECREASED [None]
